FAERS Safety Report 9306555 (Version 2)
Quarter: 2013Q2

REPORT INFORMATION
  Report Type: Spontaneous
  Country: US (occurrence: US)
  Receive Date: 20130523
  Receipt Date: 20130611
  Transmission Date: 20140414
  Serious: No
  Sender: FDA-Public Use
  Company Number: US-TEVA-405180USA

PATIENT
  Sex: Female
  Weight: 43.13 kg

DRUGS (5)
  1. PROAIR HFA [Suspect]
     Indication: ASTHMA
     Dates: start: 20120508
  2. QVAR [Suspect]
     Indication: ASTHMA
     Dates: start: 20120508
  3. VYVANSE [Concomitant]
     Indication: ATTENTION DEFICIT/HYPERACTIVITY DISORDER
  4. PERIACTIN [Concomitant]
     Indication: FEELING ABNORMAL
  5. FISH OIL [Concomitant]
     Indication: FEELING ABNORMAL

REACTIONS (3)
  - Asthma [Not Recovered/Not Resolved]
  - Cough [Not Recovered/Not Resolved]
  - Drug ineffective [Unknown]
